FAERS Safety Report 24629103 (Version 1)
Quarter: 2024Q4

REPORT INFORMATION
  Report Type: Spontaneous
  Country: FR (occurrence: FR)
  Receive Date: 20241118
  Receipt Date: 20241118
  Transmission Date: 20250115
  Serious: Yes (Hospitalization)
  Sender: CHEPLAPHARM
  Company Number: None

PATIENT
  Age: 38 Year
  Sex: Male

DRUGS (5)
  1. QUETIAPINE [Suspect]
     Active Substance: QUETIAPINE
     Dosage: 5 TABLETS OF QUETIAPINE 50MG LP?DAILY DOSE: 250 MILLIGRAM
     Route: 048
     Dates: start: 20231003
  2. QUETIAPINE [Suspect]
     Active Substance: QUETIAPINE
     Dosage: 200 MG
     Route: 048
  3. OLANZAPINE [Suspect]
     Active Substance: OLANZAPINE
     Dosage: 26 TABLETS OF OLANZAPINE 5MG?DAILY DOSE: 130 MILLIGRAM
     Route: 048
     Dates: start: 20231003
  4. XANAX [Suspect]
     Active Substance: ALPRAZOLAM
     Dosage: 2 TO 5 TABLETS A DAY
     Route: 048
     Dates: start: 202104
  5. XANAX [Suspect]
     Active Substance: ALPRAZOLAM
     Dosage: 20 TABLETS OF ALPRAZOLAM 0.25 MG?DAILY DOSE: 5 MILLIGRAM
     Route: 048
     Dates: start: 20231003

REACTIONS (4)
  - Toxicity to various agents [Recovered/Resolved]
  - Intentional product misuse [Unknown]
  - Miosis [Unknown]
  - Psychomotor hyperactivity [Unknown]

NARRATIVE: CASE EVENT DATE: 20210401
